FAERS Safety Report 10615942 (Version 1)
Quarter: 2014Q4

REPORT INFORMATION
  Report Type: Spontaneous
  Country: DE (occurrence: DE)
  Receive Date: 20141201
  Receipt Date: 20141201
  Transmission Date: 20150529
  Serious: Yes (Death, Other)
  Sender: FDA-Public Use
  Company Number: DE-CELGENE-062-50794-14081157

PATIENT
  Age: 65 Year
  Sex: Female

DRUGS (1)
  1. VIDAZA [Suspect]
     Active Substance: AZACITIDINE
     Indication: ACUTE MYELOID LEUKAEMIA
     Route: 058

REACTIONS (3)
  - Infection [Unknown]
  - Acute myeloid leukaemia [Fatal]
  - Haemorrhagic diathesis [Fatal]
